FAERS Safety Report 8986558 (Version 2)
Quarter: 2014Q1

REPORT INFORMATION
  Report Type: Report from Study
  Country: JP (occurrence: JP)
  Receive Date: 20121226
  Receipt Date: 20140303
  Transmission Date: 20141002
  Serious: Yes (Other)
  Sender: FDA-Public Use
  Company Number: JP-ROCHE-1173587

PATIENT
  Age: 61 Year
  Sex: Male

DRUGS (4)
  1. RANIBIZUMAB [Suspect]
     Indication: AGE-RELATED MACULAR DEGENERATION
     Route: 050
     Dates: start: 20090610
  2. RANIBIZUMAB [Suspect]
     Route: 050
     Dates: start: 20101025
  3. RANIBIZUMAB [Suspect]
     Route: 050
     Dates: start: 20110520
  4. MOXIFLOXACIN HYDROCHLORIDE [Concomitant]
     Dosage: DRUG REPORTED AS: VEGAMOX
     Route: 065
     Dates: start: 200906, end: 201105

REACTIONS (2)
  - Anterior chamber inflammation [Recovering/Resolving]
  - Vitreous haemorrhage [Recovering/Resolving]
